FAERS Safety Report 5396694-7 (Version None)
Quarter: 2007Q3

REPORT INFORMATION
  Report Type: 
  Country: None (occurrence: None)
  Receive Date: 20070725
  Receipt Date: 20061101
  Transmission Date: 20080115
  Serious: No
  Sender: FDA-Public Use
  Company Number: US-AMGEN-KDL198841

PATIENT
  Sex: Male

DRUGS (4)
  1. EPOGEN [Suspect]
     Indication: RENAL FAILURE CHRONIC
     Dates: start: 20060801
  2. NEORAL [Concomitant]
  3. CAPTOPRIL [Concomitant]
  4. NIFEREX [Concomitant]

REACTIONS (2)
  - PRODUCTIVE COUGH [None]
  - THROAT IRRITATION [None]
